FAERS Safety Report 9178294 (Version 1)
Quarter: 2013Q1

REPORT INFORMATION
  Report Type: Report from Study
  Country: DE (occurrence: DE)
  Receive Date: 20130321
  Receipt Date: 20130321
  Transmission Date: 20140127
  Serious: Yes (Hospitalization)
  Sender: FDA-Public Use
  Company Number: DE-BRISTOL-MYERS SQUIBB COMPANY-17472457

PATIENT
  Age: 75 Year
  Sex: Female
  Weight: 66 kg

DRUGS (5)
  1. CARBOPLATIN [Suspect]
     Indication: BREAST CANCER
     Dosage: 1DF=87AUC?LAST DOSE-18OCT12
     Route: 042
     Dates: start: 20120911
  2. PACLITAXEL [Suspect]
     Indication: BREAST CANCER
     Dosage: LAST DOSE-18OCT12
     Route: 042
     Dates: start: 20120911
  3. TRASTUZUMAB [Suspect]
     Indication: BREAST CANCER
     Dosage: INF SOL; LAST DOSE: 10OCT2012
     Route: 042
     Dates: start: 20120911
  4. LAPATINIB [Suspect]
     Indication: BREAST CANCER
     Dosage: LAST DOSE-21OCT12
     Route: 048
     Dates: start: 20120911
  5. DOXORUBICIN HCL LIPOSOME [Suspect]
     Indication: BREAST CANCER
     Dosage: FORMULATION-LIPOSOMAL ENCAPSULATED DOXORUBICIN HCL;LAST DOSE: 18-OCT-2012
     Route: 042
     Dates: start: 20120911

REACTIONS (1)
  - Orthostatic intolerance [Recovered/Resolved]
